FAERS Safety Report 5491369-8 (Version None)
Quarter: 2007Q4

REPORT INFORMATION
  Report Type: 
  Country: None (occurrence: None)
  Receive Date: 20071017
  Receipt Date: 20070927
  Transmission Date: 20080405
  Serious: Yes (Hospitalization)
  Sender: FDA-Public Use
  Company Number: FR-1164244

PATIENT
  Age: 54 Year
  Sex: Female

DRUGS (3)
  1. MAXITROL [Suspect]
     Dosage: OPHTHALMIC
     Route: 047
     Dates: start: 20070405, end: 20070412
  2. MAXITROL [Suspect]
     Dosage: OPHTHALMIC
     Route: 047
     Dates: start: 20070405, end: 20070412
  3. MAXITROL [Suspect]
     Dosage: OPHTHALMIC
     Route: 047

REACTIONS (1)
  - DRUG RASH WITH EOSINOPHILIA AND SYSTEMIC SYMPTOMS [None]
